FAERS Safety Report 13325266 (Version 6)
Quarter: 2017Q4

REPORT INFORMATION
  Report Type: Spontaneous
  Country: US (occurrence: US)
  Receive Date: 20170310
  Receipt Date: 20171110
  Transmission Date: 20180320
  Serious: Yes (Hospitalization)
  Sender: FDA-Public Use
  Company Number: US-ACTELION-A-US2017-150951

PATIENT
  Age: 21 Year
  Sex: Male
  Weight: 62.59 kg

DRUGS (6)
  1. REMODULIN [Concomitant]
     Active Substance: TREPROSTINIL
     Dosage: UNK
  2. FUROSEMIDE. [Concomitant]
     Active Substance: FUROSEMIDE
  3. OPSUMIT [Suspect]
     Active Substance: MACITENTAN
     Indication: PULMONARY ARTERIAL HYPERTENSION
     Dosage: 10 MG, QD
     Route: 048
  4. COUMADIN [Concomitant]
     Active Substance: WARFARIN SODIUM
  5. SILDENAFIL. [Concomitant]
     Active Substance: SILDENAFIL
  6. CANNABIS [Suspect]
     Active Substance: CANNABIS SATIVA SUBSP. INDICA TOP
     Indication: PRODUCT USED FOR UNKNOWN INDICATION
     Route: 065

REACTIONS (9)
  - Device dislocation [Recovered/Resolved]
  - Micrococcus test positive [Recovering/Resolving]
  - Pulmonary hypertension [Recovered/Resolved]
  - Micrococcus infection [Recovering/Resolving]
  - Staphylococcus test positive [Recovering/Resolving]
  - Lethargy [Recovered/Resolved]
  - Blood cannabinoids increased [Recovered/Resolved]
  - Bacteraemia [Recovering/Resolving]
  - Catheter site infection [Recovering/Resolving]
